FAERS Safety Report 8966685 (Version 1)
Quarter: 2012Q4

REPORT INFORMATION
  Report Type: Spontaneous
  Country: JP (occurrence: None)
  Receive Date: 20121206
  Receipt Date: 20121206
  Transmission Date: 20130627
  Serious: Yes (Hospitalization)
  Sender: FDA-Public Use
  Company Number: DSA_61071_2012

PATIENT
  Age: 59 Year
  Sex: Male

DRUGS (8)
  1. FLUOROURACIL (FLUOROURACIL) [Suspect]
     Indication: NASOPHARYNGEAL CANCER STAGE III
     Dosage: (700 mg/m2 (frequency unspecified))
     Dates: start: 2006
  2. CISPLATIN [Suspect]
     Indication: NASOPHARYNGEAL CANCER STAGE III
     Dosage: (50 mg/m2 (frequency unspecified))
     Dates: start: 2006
  3. THERAPEUTIC RADIOPHARMACEUTICALS (THERAPEUTIC RADIOPHARMACEUTICALS) [Suspect]
     Indication: NASOPHARYNGEAL CANCER STAGE III
     Dosage: (1.8 Gy daily, five times a week)
     Dates: start: 2006
  4. THERAPEUTIC RADIOPHARMACEUTICALS (THERAPEUTIC RADIOPHARMACEUTICALS) [Suspect]
     Indication: NASOPHARYNGEAL CANCER STAGE III
  5. THERAPEUTIC RADIOPHARMACEUTICALS (THERAPEUTIC RADIOPHARMACEUTICALS) [Suspect]
     Indication: NASOPHARYNGEAL CANCER STAGE III
  6. THERAPEUTIC RADIOPHARMACEUTICALS (THERAPEUTIC RADIOPHARMACEUTICALS) [Suspect]
     Indication: NASOPHARYNGEAL CANCER STAGE III
  7. MORPHINE (UNKNOWN) [Concomitant]
  8. CORTICOSTEROID NOS (UNKNOWN) [Concomitant]

REACTIONS (1)
  - Dropped head syndrome [None]
